FAERS Safety Report 17252200 (Version 1)
Quarter: 2020Q1

REPORT INFORMATION
  Report Type: Spontaneous
  Country: US (occurrence: US)
  Receive Date: 20200109
  Receipt Date: 20200109
  Transmission Date: 20200409
  Serious: Yes (Hospitalization)
  Sender: FDA-Public Use
  Company Number: US-PFIZER INC-2020001990

PATIENT
  Age: 9 Year
  Sex: Male

DRUGS (2)
  1. ZITHROMAX [Suspect]
     Active Substance: AZITHROMYCIN DIHYDRATE
     Indication: PNEUMONIA MYCOPLASMAL
  2. ZITHROMAX [Suspect]
     Active Substance: AZITHROMYCIN DIHYDRATE
     Indication: ATYPICAL PNEUMONIA
     Dosage: UNK
     Route: 048

REACTIONS (5)
  - Skin ulcer [Unknown]
  - Angioedema [Unknown]
  - Stevens-Johnson syndrome [Unknown]
  - Mucosal ulceration [Unknown]
  - Obliterative bronchiolitis [Recovering/Resolving]
